FAERS Safety Report 8405091-9 (Version None)
Quarter: 2012Q2

REPORT INFORMATION
  Report Type: 
  Country: None (occurrence: None)
  Receive Date: 20120602
  Receipt Date: 20120525
  Transmission Date: 20120825
  Serious: Yes (Other)
  Sender: FDA-Public Use
  Company Number: US-BAYER-2012-052589

PATIENT
  Age: 36 Year
  Sex: Female
  Weight: 97.506 kg

DRUGS (3)
  1. ASPIRIN [Suspect]
     Indication: BACK PAIN
  2. ASPIRIN [Suspect]
     Indication: HEADACHE
     Dosage: 1000 MG, QD
     Route: 048
     Dates: start: 20120401
  3. ASPIRIN [Suspect]
     Indication: ANALGESIC THERAPY

REACTIONS (2)
  - MENORRHAGIA [None]
  - MENSTRUATION IRREGULAR [None]
